FAERS Safety Report 6486510-4 (Version None)
Quarter: 2009Q4

REPORT INFORMATION
  Report Type: 
  Country: None (occurrence: None)
  Receive Date: 20091123
  Receipt Date: 20091111
  Transmission Date: 20100525
  Serious: Yes (Life-Threatening)
  Sender: FDA-Public Use
  Company Number: 2009020701

PATIENT
  Age: 59 Year
  Sex: Male

DRUGS (9)
  1. ALBUMINAR [Suspect]
     Indication: HAEMORRHAGE
     Dosage: 750 ML, 750 ML INTRAVENOUS DRIP
     Route: 041
     Dates: start: 20090902, end: 20090902
  2. ALBUMINAR [Suspect]
     Indication: VOLUME BLOOD DECREASED
     Dosage: 750 ML, 750 ML INTRAVENOUS DRIP
     Route: 041
     Dates: start: 20090902, end: 20090902
  3. PROPOFOL [Concomitant]
  4. EPHEDRINE SUL CAP [Concomitant]
  5. ULTIVA [Concomitant]
  6. RED BLOOD CELLS [Concomitant]
  7. HYDROCORTISONE [Concomitant]
  8. ROCURONIUM BROMIDE [Concomitant]
  9. PLASMA [Concomitant]

REACTIONS (5)
  - AIRWAY PEAK PRESSURE INCREASED [None]
  - ANAPHYLACTIC REACTION [None]
  - FLUSHING [None]
  - RESPIRATORY FAILURE [None]
  - SHOCK [None]
